FAERS Safety Report 9734417 (Version 2)
Quarter: 2013Q4

REPORT INFORMATION
  Report Type: Spontaneous
  Country: ZA (occurrence: ZA)
  Receive Date: 20131206
  Receipt Date: 20131212
  Transmission Date: 20140711
  Serious: Yes (Hospitalization, Other)
  Sender: FDA-Public Use
  Company Number: PHHY2013ZA139209

PATIENT
  Age: 25 Year
  Sex: Female

DRUGS (2)
  1. CO-AMOXICLAV [Suspect]
     Dosage: 1.2 G, UNK
     Route: 048
     Dates: start: 20131112
  2. ERYTHROPOIETIN ALPHA [Suspect]

REACTIONS (10)
  - Stillbirth [Unknown]
  - Chemical poisoning [Unknown]
  - Loss of consciousness [Unknown]
  - Miosis [Unknown]
  - Unresponsive to stimuli [Unknown]
  - Diarrhoea [Unknown]
  - Blood pressure decreased [Unknown]
  - Heart rate increased [Unknown]
  - Incorrect route of drug administration [Unknown]
  - Maternal exposure during pregnancy [Unknown]
